FAERS Safety Report 10173098 (Version 1)
Quarter: 2014Q2

REPORT INFORMATION
  Report Type: Spontaneous
  Country: US (occurrence: US)
  Receive Date: 20140515
  Receipt Date: 20140515
  Transmission Date: 20141212
  Serious: No
  Sender: FDA-Public Use
  Company Number: US-BAYER-2014-072003

PATIENT
  Age: 24 Year
  Sex: Female
  Weight: 45.35 kg

DRUGS (2)
  1. ALEVE CAPLET [Suspect]
     Indication: DYSMENORRHOEA
     Route: 048
  2. ALEVE CAPLET [Suspect]
     Indication: DYSMENORRHOEA
     Dosage: 4 DF, UNK
     Route: 048
     Dates: start: 20140512, end: 20140512

REACTIONS (5)
  - Extra dose administered [None]
  - Abdominal pain upper [Recovered/Resolved]
  - Abdominal pain upper [Not Recovered/Not Resolved]
  - Abdominal pain upper [Not Recovered/Not Resolved]
  - Vomiting [None]
